FAERS Safety Report 4651027-6 (Version None)
Quarter: 2005Q2

REPORT INFORMATION
  Report Type: 
  Country: None (occurrence: None)
  Receive Date: 20050429
  Receipt Date: 20050426
  Transmission Date: 20051028
  Serious: Yes (Other)
  Sender: FDA-Public Use
  Company Number: 2005043466

PATIENT
  Age: 71 Year
  Sex: Male
  Weight: 97.5234 kg

DRUGS (4)
  1. LIPITOR [Suspect]
     Indication: BLOOD CHOLESTEROL INCREASED
     Dosage: 40 MG (40 MG, 1 IN 1 D), ORAL
     Route: 048
     Dates: end: 20050101
  2. GLIPIZIDE [Suspect]
     Indication: DIABETES MELLITUS
     Dosage: 2.5 MG (2.5 MG, 1 IN 1 D), ORAL
     Route: 048
     Dates: start: 20040101
  3. TRICOR [Suspect]
     Indication: BLOOD TRIGLYCERIDES INCREASED
     Dosage: 145 MG (145 MG, 1 IN 1 D), ORAL
     Route: 048
     Dates: start: 20040101
  4. ATENOLOL/HYDROCHLOROTHIAZIDE (ATENOLOL, HYDROCHLOROTHIAZIDE) [Concomitant]

REACTIONS (9)
  - ATHEROSCLEROSIS [None]
  - BLOOD CREATININE INCREASED [None]
  - BLOOD GLUCOSE INCREASED [None]
  - BLOOD TRIGLYCERIDES INCREASED [None]
  - COLON CANCER [None]
  - DEPRESSION [None]
  - HYPOAESTHESIA [None]
  - REFUSAL OF TREATMENT BY PATIENT [None]
  - SPINAL DISORDER [None]
